FAERS Safety Report 15221748 (Version 1)
Quarter: 2018Q3

REPORT INFORMATION
  Report Type: Spontaneous
  Country: US (occurrence: US)
  Receive Date: 20180731
  Receipt Date: 20180731
  Transmission Date: 20181010
  Serious: No
  Sender: FDA-Public Use
  Company Number: US-BAUSCH-BL-2018-019473

PATIENT
  Age: 76 Year
  Sex: Female
  Weight: 74.91 kg

DRUGS (1)
  1. IPRATROPIUM BROMIDE NASAL SOLUTION [Suspect]
     Active Substance: IPRATROPIUM BROMIDE
     Indication: RHINORRHOEA
     Dosage: 2 SPRAYS IN EACH NOSTRIL (AS NEEDED), NASAL SOLUTION
     Route: 045
     Dates: start: 2013

REACTIONS (2)
  - Product physical consistency issue [Not Recovered/Not Resolved]
  - Drug ineffective [Not Recovered/Not Resolved]

NARRATIVE: CASE EVENT DATE: 201806
